FAERS Safety Report 8847018 (Version 1)
Quarter: 2012Q4

REPORT INFORMATION
  Report Type: 
  Country: US (occurrence: US)
  Receive Date: 20121018
  Receipt Date: 20121018
  Transmission Date: 20130627
  Serious: No
  Sender: FDA-Public Use
  Company Number: US-BAYER-2012-108808

PATIENT
  Age: 70 Year
  Sex: Female
  Weight: 67.57 kg

DRUGS (3)
  1. ALEVE GELCAP [Suspect]
     Dosage: 1 DF, QD
     Route: 048
     Dates: start: 201201
  2. LEVOTHYROXIN [Concomitant]
  3. VITAMIN D3 [Concomitant]

REACTIONS (1)
  - No adverse event [None]
